FAERS Safety Report 4871593-5 (Version None)
Quarter: 2005Q4

REPORT INFORMATION
  Report Type: 
  Country: None (occurrence: None)
  Receive Date: 20051230
  Receipt Date: 20051219
  Transmission Date: 20060501
  Serious: Yes (Hospitalization)
  Sender: FDA-Public Use
  Company Number: 13139

PATIENT
  Age: 53 Year
  Sex: Male

DRUGS (4)
  1. MORPHINE [Suspect]
     Indication: PROCEDURAL PAIN
  2. TRAMADOL HCL [Suspect]
     Indication: OSTEOARTHRITIS
     Dosage: 100 MG FREQ
  3. PARACETAMOL [Concomitant]
  4. OMEPRAZOLE [Concomitant]

REACTIONS (3)
  - DRUG WITHDRAWAL SYNDROME [None]
  - ELECTROCARDIOGRAM ST SEGMENT DEPRESSION [None]
  - RESPIRATORY ALKALOSIS [None]
